FAERS Safety Report 11125787 (Version 5)
Quarter: 2016Q2

REPORT INFORMATION
  Report Type: Spontaneous
  Country: US (occurrence: US)
  Receive Date: 20150520
  Receipt Date: 20160608
  Transmission Date: 20160815
  Serious: No
  Sender: FDA-Public Use
  Company Number: US-PFIZER INC-2015164029

PATIENT
  Age: 64 Year
  Sex: Female
  Weight: 70 kg

DRUGS (29)
  1. LYRICA [Suspect]
     Active Substance: PREGABALIN
     Dosage: 150 MG, UNK
  2. LYRICA [Suspect]
     Active Substance: PREGABALIN
     Dosage: 150 MG, 1X/DAY
  3. WELLBUTRIN XL [Concomitant]
     Active Substance: BUPROPION HYDROCHLORIDE
     Dosage: 150 MG, 1X/DAY
  4. DEXILANT [Concomitant]
     Active Substance: DEXLANSOPRAZOLE
     Dosage: 60 MG, 2X/DAY (TAKE 1 CAPSULE EVERY TWELVE HOURS)
     Route: 048
     Dates: start: 20090418
  5. ADVAIR DISKUS [Concomitant]
     Active Substance: FLUTICASONE PROPIONATE\SALMETEROL XINAFOATE
     Indication: ASTHMA
     Dosage: 150 / 50, 2X/DAY
  6. BUSPIRONE HCL [Concomitant]
     Active Substance: BUSPIRONE HYDROCHLORIDE
     Dosage: 20 MG, DAILY (10 MG ORAL TABLET)(TAKE2 TABLET DAILY)
     Route: 048
     Dates: start: 20030418
  7. CURCUMA LONGA RHIZOME [Concomitant]
     Dosage: 1 DF, 2X/DAY
     Route: 048
     Dates: start: 20150218
  8. LYRICA [Suspect]
     Active Substance: PREGABALIN
     Dosage: 75 MG, UNK
  9. LYRICA [Suspect]
     Active Substance: PREGABALIN
     Dosage: 150 MG, 2X/DAY
  10. WELLBUTRIN XL [Concomitant]
     Active Substance: BUPROPION HYDROCHLORIDE
     Dosage: 150 MG, DAILY (TAKE 1 TABLET DAILY)
     Route: 048
     Dates: start: 20130418
  11. VENTOLIN HFA [Concomitant]
     Active Substance: ALBUTEROL SULFATE
     Dosage: UNK, AS NEEDED (INHALE 1 TO 2 PUFFS EVERY 4 TO 6 HOURS AS NEEDED)
     Dates: start: 20120418
  12. VERAMYST [Concomitant]
     Active Substance: FLUTICASONE FUROATE
     Dosage: 27.5 ?G, 2X/DAY
  13. BEPREVE [Concomitant]
     Active Substance: BEPOTASTINE BESILATE
     Dosage: 1.5 %, AS NEEDED
     Route: 047
     Dates: start: 20150218
  14. COLACE [Concomitant]
     Active Substance: DOCUSATE SODIUM
     Dosage: 100 MG, AS NEEDED (100 MG ORAL CAPSULE PRN)
     Route: 048
  15. DETROL [Concomitant]
     Active Substance: TOLTERODINE TARTRATE
     Dosage: 1 MG, DAILY
     Route: 048
     Dates: start: 20090418
  16. BUSPIRONE [Concomitant]
     Active Substance: BUSPIRONE HYDROCHLORIDE
     Dosage: 15 MG, 2X/DAY
  17. DETROL LA [Concomitant]
     Active Substance: TOLTERODINE TARTRATE
     Dosage: 4 MG, 1X/DAY
  18. CLARINEX [Concomitant]
     Active Substance: DESLORATADINE
     Dosage: 5 MG, SINGLE (5 MG TBDP)(DISSOLVE 1 TABLET ON TONGUE WITH OR WITHOUT WATER ONCE DAILY)
     Dates: start: 20150702
  19. BENADRYL ALLERGY ORAL SOLUTION [Concomitant]
     Dosage: UNK, 4X/DAY (TAKE 1 TEASPOONFUL 4 TIMES DAILY)
  20. MIRALAX [Concomitant]
     Active Substance: POLYETHYLENE GLYCOL 3350
     Dosage: UNK (AS DIRECTED)
  21. LYRICA [Suspect]
     Active Substance: PREGABALIN
     Dosage: 75 MG, 1X/DAY (TAKE 1 CAP PO IN EVENING)
     Route: 048
  22. CARAC [Concomitant]
     Active Substance: FLUOROURACIL
     Dosage: 0.5 %, UNK
  23. CYCLOBENZAPRINE HCL [Concomitant]
     Active Substance: CYCLOBENZAPRINE HYDROCHLORIDE
     Dosage: 10 MG, UNK
     Route: 048
     Dates: start: 20151015
  24. IBUPROFEN. [Concomitant]
     Active Substance: IBUPROFEN
     Dosage: 200 MG, AS NEEDED (TAKE TABLET PRN)
     Route: 048
  25. TYLENOL [Concomitant]
     Active Substance: ACETAMINOPHEN
     Dosage: 325 MG, UNK (AS DIRECTED)
     Route: 048
     Dates: start: 20130430
  26. VITAMIN D [Concomitant]
     Active Substance: CHOLECALCIFEROL
     Dosage: 1000 IU, 3X/DAY
     Route: 048
     Dates: start: 20130520
  27. LYRICA [Suspect]
     Active Substance: PREGABALIN
     Dosage: 50 MG, 1X/DAY (TAKE 1 CAP PO IN MORNING)
     Route: 048
  28. ADVAIR DISKUS [Concomitant]
     Active Substance: FLUTICASONE PROPIONATE\SALMETEROL XINAFOATE
     Dosage: UNK (FLUTICASONE PROPIONATE: 100UG; SALMETEROL XINAFOATE 50UG) INHALE 1 PUFF TWICE DAILY
  29. VERAMYST [Concomitant]
     Active Substance: FLUTICASONE FUROATE
     Dosage: UNK UNK, DAILY (INSTILL 1 SQUIRT DAILY)
     Route: 045
     Dates: start: 20120418

REACTIONS (4)
  - Dizziness [Unknown]
  - Vision blurred [Unknown]
  - Drug hypersensitivity [Unknown]
  - Swelling [Unknown]
